FAERS Safety Report 7792394 (Version 3)
Quarter: 2013Q4

REPORT INFORMATION
  Report Type: Spontaneous
  Country: US (occurrence: US)
  Receive Date: 20110131
  Receipt Date: 20131118
  Transmission Date: 20140711
  Serious: Yes (Other)
  Sender: FDA-Public Use
  Company Number: US-BAYER-201038148NA

PATIENT
  Age: 27 Year
  Sex: Female

DRUGS (6)
  1. YAZ [Suspect]
     Indication: ACNE
     Dosage: UNK
  2. YASMIN [Suspect]
     Indication: ACNE
     Dosage: UNK
  3. OCELLA [Suspect]
     Indication: ACNE
     Dosage: UNK
  4. ZITHROMAX [Concomitant]
     Indication: SINUSITIS
     Dosage: UNK
     Dates: start: 200702
  5. ASPIRIN [Concomitant]
     Dosage: 81 MG, UNK
     Route: 048
     Dates: start: 20070306
  6. APAP W/HYDROCODONE [Concomitant]
     Dosage: UNK
     Route: 048
     Dates: start: 20070212

REACTIONS (4)
  - Injury [None]
  - Pain [None]
  - Biliary dyskinesia [None]
  - Cholecystitis chronic [None]
